FAERS Safety Report 12599707 (Version 1)
Quarter: 2016Q3

REPORT INFORMATION
  Report Type: Spontaneous
  Country: US (occurrence: US)
  Receive Date: 20160727
  Receipt Date: 20160727
  Transmission Date: 20161109
  Serious: Yes (Other)
  Sender: FDA-Public Use
  Company Number: US-SA-2016SA056442

PATIENT
  Age: 71 Year
  Sex: Female
  Weight: 77.11 kg

DRUGS (11)
  1. TERAZOSIN [Concomitant]
     Active Substance: TERAZOSIN\TERAZOSIN HYDROCHLORIDE
     Indication: BLADDER DISORDER
     Dosage: START DATE- 10 YEARS
     Route: 065
  2. OXYBUTIN [Concomitant]
     Active Substance: OXYBUTYNIN
     Indication: BLADDER PAIN
     Dosage: START DATE- 5 YEARS
     Route: 065
  3. AMBIEN [Suspect]
     Active Substance: ZOLPIDEM TARTRATE
     Indication: INSOMNIA
     Route: 048
     Dates: start: 2005
  4. AMBIEN [Suspect]
     Active Substance: ZOLPIDEM TARTRATE
     Indication: PAIN IN EXTREMITY
     Route: 048
     Dates: start: 2005
  5. AMBIEN [Suspect]
     Active Substance: ZOLPIDEM TARTRATE
     Indication: PAIN IN EXTREMITY
     Route: 048
     Dates: start: 2005
  6. AMBIEN [Suspect]
     Active Substance: ZOLPIDEM TARTRATE
     Indication: PAIN IN EXTREMITY
     Route: 048
     Dates: start: 2005
  7. METOPROLOL. [Concomitant]
     Active Substance: METOPROLOL
     Indication: CARDIAC DISORDER
     Dosage: START DATE- 5 YEARS
     Route: 065
  8. AMBIEN [Suspect]
     Active Substance: ZOLPIDEM TARTRATE
     Indication: INSOMNIA
     Route: 048
     Dates: start: 2005
  9. AMBIEN [Suspect]
     Active Substance: ZOLPIDEM TARTRATE
     Indication: INSOMNIA
     Route: 048
     Dates: start: 2005
  10. GABAPENTIN. [Concomitant]
     Active Substance: GABAPENTIN
     Indication: NEUROPATHY PERIPHERAL
     Dosage: START DATE-5 YEARS
     Route: 065
  11. BACLOFEN. [Concomitant]
     Active Substance: BACLOFEN
     Dosage: START DATE- 10 YEARS
     Route: 065

REACTIONS (8)
  - Headache [Not Recovered/Not Resolved]
  - Extra dose administered [Unknown]
  - Product quality issue [Unknown]
  - Malaise [Not Recovered/Not Resolved]
  - Pain in extremity [Not Recovered/Not Resolved]
  - Somnolence [Unknown]
  - Therapeutic response unexpected [Unknown]
  - Dizziness [Unknown]

NARRATIVE: CASE EVENT DATE: 20160314
